FAERS Safety Report 5054421-7 (Version None)
Quarter: 2006Q3

REPORT INFORMATION
  Report Type: 
  Country: None (occurrence: None)
  Receive Date: 20060713
  Receipt Date: 20060626
  Transmission Date: 20061208
  Serious: Yes (Death, Life-Threatening, Hospitalization)
  Sender: FDA-Public Use
  Company Number: 2006-01005

PATIENT
  Age: 72 Year
  Sex: Male

DRUGS (2)
  1. VELCADE [Suspect]
     Indication: MYELODYSPLASTIC SYNDROME
     Dosage: 1.00 MG/M2, INTRAVENOUS
     Route: 042
     Dates: start: 20060421, end: 20060421
  2. THALIDOMIDE (THALIDOMIDE) [Suspect]
     Indication: MYELODYSPLASTIC SYNDROME
     Dosage: 50.00 MG, ORAL
     Route: 048
     Dates: start: 20060421, end: 20060422

REACTIONS (12)
  - ACUTE RESPIRATORY DISTRESS SYNDROME [None]
  - AORTIC ANEURYSM [None]
  - ATRIAL FIBRILLATION [None]
  - BLOOD LACTIC ACID INCREASED [None]
  - DRUG TOXICITY [None]
  - HAEMODIALYSIS [None]
  - INTESTINAL ISCHAEMIA [None]
  - PNEUMONIA [None]
  - PNEUMONIA BACTERIAL [None]
  - PULMONARY HAEMORRHAGE [None]
  - PULMONARY OEDEMA [None]
  - RENAL FAILURE [None]
